FAERS Safety Report 9373880 (Version 1)
Quarter: 2013Q2

REPORT INFORMATION
  Report Type: Report from Study
  Country: US (occurrence: US)
  Receive Date: 20130628
  Receipt Date: 20130628
  Transmission Date: 20140414
  Serious: Yes (Other)
  Sender: FDA-Public Use
  Company Number: US-ROCHE-1241547

PATIENT
  Sex: Female
  Weight: 90.8 kg

DRUGS (2)
  1. LUCENTIS [Suspect]
     Indication: AGE-RELATED MACULAR DEGENERATION
     Route: 065
  2. LUCENTIS [Suspect]
     Dosage: RESTARTED
     Route: 065

REACTIONS (2)
  - Ovarian cancer [Not Recovered/Not Resolved]
  - Retinal haemorrhage [Not Recovered/Not Resolved]
